FAERS Safety Report 23383627 (Version 1)
Quarter: 2024Q1

REPORT INFORMATION
  Report Type: Spontaneous
  Country: CN (occurrence: CN)
  Receive Date: 20240109
  Receipt Date: 20240109
  Transmission Date: 20240409
  Serious: Yes (Hospitalization)
  Sender: FDA-Public Use
  Company Number: CN-002147023-NVSC2023CN276266

PATIENT
  Age: 70 Year
  Sex: Female
  Weight: 53.5 kg

DRUGS (1)
  1. IMATINIB MESYLATE [Suspect]
     Active Substance: IMATINIB MESYLATE
     Indication: Colorectal neoplasm
     Dosage: 400 MG, QD
     Route: 048
     Dates: start: 20231008, end: 20231122

REACTIONS (11)
  - Drug eruption [Recovering/Resolving]
  - Rash [Unknown]
  - Eczema [Recovering/Resolving]
  - Skin lesion [Recovering/Resolving]
  - Rash [Recovering/Resolving]
  - Face oedema [Recovering/Resolving]
  - Oedema peripheral [Recovering/Resolving]
  - Pruritus [Recovering/Resolving]
  - Papule [Unknown]
  - Effusion [Unknown]
  - Erythema [Unknown]

NARRATIVE: CASE EVENT DATE: 20231029
